FAERS Safety Report 9394632 (Version 2)
Quarter: 2013Q4

REPORT INFORMATION
  Report Type: Spontaneous
  Country: GB (occurrence: GB)
  Receive Date: 20130711
  Receipt Date: 20131029
  Transmission Date: 20140711
  Serious: Yes (Other)
  Sender: FDA-Public Use
  Company Number: GB-009507513-1307GBR002213

PATIENT
  Age: 25 Year
  Sex: Female

DRUGS (5)
  1. ZISPIN SOLTAB [Suspect]
     Indication: DEPRESSION
     Dosage: 15 MG, UNK
     Route: 048
     Dates: start: 20130617, end: 20130617
  2. CHLORPROMAZINE [Concomitant]
     Dosage: 25 MG, PRN
  3. CITALOPRAM [Concomitant]
     Dosage: 40 MG, UNK
  4. LORAZEPAM [Concomitant]
     Dosage: 1 MG, UNK
  5. QUETIAPINE [Concomitant]
     Dosage: 25 MG, UNK

REACTIONS (4)
  - Feeling of body temperature change [Recovered/Resolved]
  - Palpitations [Recovered/Resolved]
  - Visual impairment [Recovered/Resolved]
  - Pyrexia [Recovered/Resolved]
